FAERS Safety Report 9025352 (Version 1)
Quarter: 2012Q4

REPORT INFORMATION
  Report Type: 
  Country: MX (occurrence: MX)
  Receive Date: 20121211
  Receipt Date: 20121211
  Transmission Date: 20130627
  Serious: Yes (Other)
  Sender: FDA-Public Use
  Company Number: PHHY2012MX113373

PATIENT
  Sex: Female

DRUGS (3)
  1. DIOVAN [Suspect]
     Indication: HYPERTENSION
     Dosage: 320 mg, daily
     Route: 048
  2. BI-EUGLUCON M [Concomitant]
     Indication: BLOOD GLUCOSE ABNORMAL
     Dosage: 3 DF, daily
     Route: 065
     Dates: start: 1992
  3. LYRICA [Concomitant]
     Indication: DIABETIC NEUROPATHY
     Dosage: 1DF,daily
     Route: 065

REACTIONS (2)
  - Osteoarthritis [Recovered/Resolved]
  - Musculoskeletal pain [Recovered/Resolved]
